FAERS Safety Report 10742635 (Version 3)
Quarter: 2015Q1

REPORT INFORMATION
  Report Type: Spontaneous
  Country: US (occurrence: US)
  Receive Date: 20150127
  Receipt Date: 20150330
  Transmission Date: 20150721
  Serious: Yes (Hospitalization, Disabling, Other)
  Sender: FDA-Public Use
  Company Number: US-009507513-1105USA01699

PATIENT
  Sex: Female
  Weight: 57.6 kg

DRUGS (4)
  1. ALENDRONATE SODIUM. [Suspect]
     Active Substance: ALENDRONATE SODIUM
     Indication: OSTEOPOROSIS
     Dosage: 70 MG, WEEKLY
     Route: 048
     Dates: start: 20080206, end: 20090509
  2. FOSAMAX [Suspect]
     Active Substance: ALENDRONATE SODIUM
     Indication: OSTEOPENIA
     Dosage: 70 MG, ON SAME DAY WEEKLY
     Route: 048
     Dates: start: 20011023, end: 20111107
  3. ALENDRONATE SODIUM. [Suspect]
     Active Substance: ALENDRONATE SODIUM
     Indication: OSTEOPENIA
  4. FOSAMAX [Suspect]
     Active Substance: ALENDRONATE SODIUM
     Indication: OSTEOPOROSIS
     Dosage: 10 MG, UNK
     Route: 048
     Dates: start: 20010125, end: 20011023

REACTIONS (24)
  - Intramedullary rod insertion [Recovered/Resolved]
  - Hyponatraemia [Unknown]
  - Femur fracture [Recovered/Resolved]
  - Osteoarthritis [Unknown]
  - Medical device complication [Unknown]
  - Osteoporosis [Not Recovered/Not Resolved]
  - Vitamin D deficiency [Unknown]
  - Arthralgia [Not Recovered/Not Resolved]
  - Fall [Unknown]
  - Anaemia postoperative [Not Recovered/Not Resolved]
  - Hip arthroplasty [Unknown]
  - Hypertension [Not Recovered/Not Resolved]
  - Pubis fracture [Unknown]
  - Osteonecrosis [Unknown]
  - Medical device removal [Unknown]
  - Hypothyroidism [Not Recovered/Not Resolved]
  - Electrocardiogram T wave amplitude decreased [Unknown]
  - Chronic obstructive pulmonary disease [Unknown]
  - Hyperlipidaemia [Unknown]
  - Insomnia [Unknown]
  - Leukocytosis [Not Recovered/Not Resolved]
  - Urinary incontinence [Unknown]
  - Low turnover osteopathy [Not Recovered/Not Resolved]
  - Procedural pain [Unknown]

NARRATIVE: CASE EVENT DATE: 2001
